FAERS Safety Report 16811929 (Version 1)
Quarter: 2019Q3

REPORT INFORMATION
  Report Type: Report from Study
  Country: CA (occurrence: CA)
  Receive Date: 20190916
  Receipt Date: 20190916
  Transmission Date: 20191005
  Serious: Yes (Death)
  Sender: FDA-Public Use
  Company Number: CA-JNJFOC-20190904402

PATIENT

DRUGS (1)
  1. REMICADE [Suspect]
     Active Substance: INFLIXIMAB
     Indication: BIPOLAR DISORDER
     Route: 042

REACTIONS (3)
  - Brain injury [Fatal]
  - Product use in unapproved indication [Unknown]
  - Off label use [Unknown]
